FAERS Safety Report 9084899 (Version 1)
Quarter: 2013Q1

REPORT INFORMATION
  Report Type: Spontaneous
  Country: US (occurrence: US)
  Receive Date: 20130130
  Receipt Date: 20130130
  Transmission Date: 20140127
  Serious: Yes (Death, Other)
  Sender: FDA-Public Use
  Company Number: US-ELI_LILLY_AND_COMPANY-US201301008191

PATIENT
  Sex: 0

DRUGS (3)
  1. GEMZAR [Suspect]
     Indication: BILE DUCT CANCER
     Dosage: 1800 MG, 2/M
     Dates: start: 20120114, end: 20120314
  2. CISPLATIN [Concomitant]
     Dosage: 92 MG, UNK
  3. MANITOL [Concomitant]
     Dosage: 12.5 MG, UNK

REACTIONS (3)
  - Death [Fatal]
  - Pulmonary embolism [Unknown]
  - Anuria [Unknown]
